FAERS Safety Report 9264957 (Version 2)
Quarter: 2014Q1

REPORT INFORMATION
  Report Type: Spontaneous
  Country: JP (occurrence: JP)
  Receive Date: 20130501
  Receipt Date: 20140307
  Transmission Date: 20141002
  Serious: Yes (Other)
  Sender: FDA-Public Use
  Company Number: JP-ACCORD-017439

PATIENT
  Age: 71 Year
  Sex: Female

DRUGS (3)
  1. GEMCITABINE/GEMCITABINE HYDROCHLORIDE [Suspect]
     Indication: OVARIAN CANCER RECURRENT
     Dosage: THREE WEEKS ON AND ONE WEEK OFF,  Q4 WEEKS
  2. BEVACIZUMAB [Suspect]
     Indication: OVARIAN CANCER RECURRENT
     Dosage: THREE WEEKS ON AND ONE WEEK OFF, Q4 WEEKS
  3. OXALIPLATIN [Suspect]
     Indication: OVARIAN CANCER RECURRENT
     Dosage: THREE WEEKS ON AND ONE WEEK OFF, Q4 WEEKS

REACTIONS (4)
  - Nausea [Unknown]
  - Fatigue [Unknown]
  - Pain of skin [Unknown]
  - Neutropenia [Unknown]
